FAERS Safety Report 4340985-5 (Version None)
Quarter: 2004Q2

REPORT INFORMATION
  Report Type: 
  Country: None (occurrence: None)
  Receive Date: 20040413
  Receipt Date: 20040407
  Transmission Date: 20050107
  Serious: Yes (Life-Threatening)
  Sender: FDA-Public Use
  Company Number: 2004SE01961

PATIENT
  Age: 79 Year
  Sex: Female

DRUGS (4)
  1. LOSEC [Suspect]
     Indication: OESOPHAGITIS
     Dates: start: 20000101, end: 20030101
  2. ZESTRIL [Concomitant]
  3. APRANAX [Concomitant]
  4. ZYLORIC ^FAES^ [Concomitant]

REACTIONS (1)
  - LYMPHOMA [None]
